FAERS Safety Report 13597948 (Version 1)
Quarter: 2017Q2

REPORT INFORMATION
  Report Type: Spontaneous
  Country: TW (occurrence: TW)
  Receive Date: 20170531
  Receipt Date: 20170531
  Transmission Date: 20170830
  Serious: Yes (Other)
  Sender: FDA-Public Use
  Company Number: TW-AMGEN-TWNSP2017080902

PATIENT
  Age: 70 Year
  Sex: Female

DRUGS (1)
  1. PROLIA [Suspect]
     Active Substance: DENOSUMAB
     Indication: OSTEOPOROSIS
     Dosage: UNK
     Route: 058
     Dates: start: 201610

REACTIONS (5)
  - Palpitations [Recovering/Resolving]
  - Acute respiratory distress syndrome [Recovering/Resolving]
  - Cystitis [Not Recovered/Not Resolved]
  - Hypothyroidism [Recovering/Resolving]
  - Urethritis [Not Recovered/Not Resolved]

NARRATIVE: CASE EVENT DATE: 201611
